FAERS Safety Report 16421751 (Version 1)
Quarter: 2019Q2

REPORT INFORMATION
  Report Type: Spontaneous
  Country: CN (occurrence: CN)
  Receive Date: 20190612
  Receipt Date: 20190612
  Transmission Date: 20190711
  Serious: Yes (Death, Other)
  Sender: FDA-Public Use
  Company Number: CN-PFIZER INC-2019243403

PATIENT
  Age: 3 Year
  Sex: Male

DRUGS (7)
  1. CYCLOPHOSPHAMIDE. [Suspect]
     Active Substance: CYCLOPHOSPHAMIDE
     Indication: BURKITT^S LYMPHOMA
     Dosage: UNK
  2. 6-MERCAPTOPURINE [Suspect]
     Active Substance: MERCAPTOPURINE
     Indication: BURKITT^S LYMPHOMA
     Dosage: UNK
  3. 6-THIOGUANINE [Suspect]
     Active Substance: THIOGUANINE
     Indication: BURKITT^S LYMPHOMA
     Dosage: UNK
  4. L-ASPARAGINASE [Suspect]
     Active Substance: ASPARAGINASE
     Indication: BURKITT^S LYMPHOMA
     Dosage: UNK
  5. CYTARABINE. [Suspect]
     Active Substance: CYTARABINE
     Indication: BURKITT^S LYMPHOMA
     Dosage: UNK
  6. METHOTREXATE SODIUM. [Suspect]
     Active Substance: METHOTREXATE SODIUM
     Indication: BURKITT^S LYMPHOMA
     Dosage: UNK, CYCLIC(3 CYCLES)
  7. VINCRISTINE [Suspect]
     Active Substance: VINCRISTINE
     Indication: BURKITT^S LYMPHOMA
     Dosage: UNK

REACTIONS (3)
  - Drug intolerance [Unknown]
  - Haemorrhage [Fatal]
  - Thrombocytopenia [Unknown]
